FAERS Safety Report 4346059-1 (Version None)
Quarter: 2004Q1

REPORT INFORMATION
  Report Type: 
  Country: None (occurrence: None)
  Receive Date: 20040325
  Receipt Date: 20031201
  Transmission Date: 20041129
  Serious: No
  Sender: FDA-Public Use
  Company Number: USA031253713

PATIENT
  Age: 59 Year
  Sex: Male

DRUGS (8)
  1. FORTEO [Suspect]
     Indication: OSTEOPOROSIS
     Dosage: 20 UG/DAY
     Dates: start: 20031101
  2. PERMAX [Concomitant]
  3. SINEMET [Concomitant]
  4. SINEMET CR [Concomitant]
  5. NEURONTIN [Concomitant]
  6. INDERAL [Concomitant]
  7. NEXIUM [Concomitant]
  8. DOMPERIDONE [Concomitant]

REACTIONS (2)
  - FATIGUE [None]
  - HYPERSOMNIA [None]
